FAERS Safety Report 19620749 (Version 2)
Quarter: 2025Q2

REPORT INFORMATION
  Report Type: Spontaneous
  Country: FR (occurrence: FR)
  Receive Date: 20210728
  Receipt Date: 20250529
  Transmission Date: 20250716
  Serious: Yes (Hospitalization, Other)
  Sender: UCB
  Company Number: FR-TEVA-2021-FR-1930326

PATIENT
  Age: 47 Year
  Sex: Female

DRUGS (16)
  1. KEPPRA [Suspect]
     Active Substance: LEVETIRACETAM
     Indication: Product used for unknown indication
  2. CHLORMADINONE ACETATE [Suspect]
     Active Substance: CHLORMADINONE ACETATE
     Indication: Product used for unknown indication
     Dates: start: 20180104
  3. CHLORMADINONE [Suspect]
     Active Substance: CHLORMADINONE
     Dates: start: 20180104
  4. MEFENAMIC ACID [Concomitant]
     Active Substance: MEFENAMIC ACID
     Indication: Product used for unknown indication
     Dates: start: 20200115, end: 20201019
  5. MEFENAMIC ACID [Concomitant]
     Active Substance: MEFENAMIC ACID
     Dates: start: 20190308
  6. TRANEXAMIC ACID [Concomitant]
     Active Substance: TRANEXAMIC ACID
     Indication: Intermenstrual bleeding
     Dates: start: 20200115, end: 20200119
  7. TRANEXAMIC ACID [Concomitant]
     Active Substance: TRANEXAMIC ACID
     Indication: Anxiety
     Dates: start: 20091113, end: 20140528
  8. TRANEXAMIC ACID [Concomitant]
     Active Substance: TRANEXAMIC ACID
     Indication: Depression
  9. HYDROCHLOROTHIAZIDE\VALSARTAN [Concomitant]
     Active Substance: HYDROCHLOROTHIAZIDE\VALSARTAN
     Indication: Hypertension
     Dates: start: 2011
  10. EXFORGE [Concomitant]
     Active Substance: AMLODIPINE BESYLATE\VALSARTAN
     Indication: Hypertension
     Dates: start: 20140524
  11. RAMIPRIL [Concomitant]
     Active Substance: RAMIPRIL
     Indication: Hypertension
  12. MIGRALGINE [Concomitant]
     Active Substance: AMYLOCAINE HYDROCHLORIDE\ANTIPYRINE\CAFFEINE\CODEINE
     Indication: Product used for unknown indication
  13. AMITRIPTYLINE HYDROCHLORIDE [Concomitant]
     Active Substance: AMITRIPTYLINE HYDROCHLORIDE
     Indication: Migraine
     Dates: end: 20130524
  14. EFFEXOR [Concomitant]
     Active Substance: VENLAFAXINE HYDROCHLORIDE
     Indication: Anxiety
     Dates: start: 20110726, end: 20150115
  15. EFFEXOR [Concomitant]
     Active Substance: VENLAFAXINE HYDROCHLORIDE
     Indication: Depression
  16. CHLORMADINONE ACETATE [Concomitant]
     Active Substance: CHLORMADINONE ACETATE
     Indication: Haemorrhagic disorder
     Dates: start: 20091113, end: 20191120

REACTIONS (15)
  - Meningioma [Recovered/Resolved]
  - Diplopia [Unknown]
  - Phlebitis [Recovered/Resolved]
  - Hyposmia [Unknown]
  - Paraesthesia [Unknown]
  - Disturbance in attention [Unknown]
  - Cognitive disorder [Not Recovered/Not Resolved]
  - Memory impairment [Not Recovered/Not Resolved]
  - Muscle disorder [Unknown]
  - Fatigue [Unknown]
  - Headache [Recovering/Resolving]
  - Migraine [Unknown]
  - Mood altered [Not Recovered/Not Resolved]
  - Cerebral ventricle dilatation [Unknown]
  - Irritability [Not Recovered/Not Resolved]
